FAERS Safety Report 17172058 (Version 1)
Quarter: 2019Q4

REPORT INFORMATION
  Report Type: Spontaneous
  Country: US (occurrence: US)
  Receive Date: 20191219
  Receipt Date: 20191219
  Transmission Date: 20200122
  Serious: No
  Sender: FDA-Public Use
  Company Number: US-UCBSA-016838

PATIENT
  Age: 35 Year
  Sex: Female

DRUGS (2)
  1. CIMZIA [Suspect]
     Active Substance: CERTOLIZUMAB PEGOL
     Indication: CROHN^S DISEASE
     Dosage: UNSPECIFIED
     Route: 058
     Dates: start: 201005
  2. CIMZIA [Suspect]
     Active Substance: CERTOLIZUMAB PEGOL
     Indication: CROHN^S DISEASE
     Dosage: APPROXIMATELY 2 YEARS AGO (2012)
     Dates: start: 2012

REACTIONS (2)
  - Depression [Unknown]
  - Product quality issue [Unknown]

NARRATIVE: CASE EVENT DATE: 201007
